FAERS Safety Report 24140737 (Version 2)
Quarter: 2024Q3

REPORT INFORMATION
  Report Type: Spontaneous
  Country: US (occurrence: US)
  Receive Date: 20240726
  Receipt Date: 20240809
  Transmission Date: 20241017
  Serious: Yes (Hospitalization)
  Sender: TEVA
  Company Number: US-TEVA-VS-3223147

PATIENT
  Age: 80 Year
  Sex: Female

DRUGS (2)
  1. PREDNISOLONE [Suspect]
     Active Substance: PREDNISOLONE
     Indication: Corneal oedema
     Dosage: 4 TIMES DAILY
     Route: 065
  2. RIPASUDIL [Suspect]
     Active Substance: RIPASUDIL
     Indication: Corneal oedema
     Dosage: 4 TIMES A DAY
     Route: 061

REACTIONS (3)
  - Conjunctival hyperaemia [Recovered/Resolved]
  - Off label use [Unknown]
  - Drug ineffective [Unknown]
